FAERS Safety Report 8317163-8 (Version None)
Quarter: 2012Q2

REPORT INFORMATION
  Report Type: 
  Country: None (occurrence: None)
  Receive Date: 20120425
  Receipt Date: 20120413
  Transmission Date: 20120825
  Serious: Yes (Other)
  Sender: FDA-Public Use
  Company Number: AUR-APL-2012-01358

PATIENT
  Age: 51 Year
  Sex: Female
  Weight: 84.8226 kg

DRUGS (2)
  1. ALENDRONIC ACID (ALENDRONIC ACID) [Suspect]
     Indication: OSTEOPOROSIS
     Dosage: 10 MG (70 MG, 1 IN 1 WK),ORAL
     Route: 048
     Dates: start: 20111101, end: 20120304
  2. SYNTHROID [Concomitant]

REACTIONS (3)
  - MUSCLE SPASMS [None]
  - CHEST PAIN [None]
  - PAIN IN JAW [None]
